FAERS Safety Report 11997672 (Version 1)
Quarter: 2016Q1

REPORT INFORMATION
  Report Type: Spontaneous
  Country: US (occurrence: US)
  Receive Date: 20160203
  Receipt Date: 20160203
  Transmission Date: 20160526
  Serious: No
  Sender: FDA-Public Use
  Company Number: US-ANACOR-2015ANA00218

PATIENT
  Age: 82 Year
  Sex: Female
  Weight: 56.46 kg

DRUGS (10)
  1. FLUOCINOLONE ACETONIDE OIL (AMNEAL) [Suspect]
     Active Substance: FLUOCINOLONE ACETONIDE
     Indication: SCAB
  2. FLUOCINOLONE ACETONIDE OIL (AMNEAL) [Suspect]
     Active Substance: FLUOCINOLONE ACETONIDE
     Indication: SKIN FISSURES
     Dosage: UNK GTT, UNK
     Route: 001
     Dates: end: 20151208
  3. VITAMIN C [Concomitant]
     Active Substance: ASCORBIC ACID
     Dosage: UNK, 1X/DAY
  4. FLUOCINOLONE ACETONIDE OIL (AMNEAL) [Suspect]
     Active Substance: FLUOCINOLONE ACETONIDE
     Indication: PRURITUS
  5. EYESOL DROPS [Concomitant]
  6. KERYDIN [Suspect]
     Active Substance: TAVABOROLE
     Indication: INFECTION
     Dosage: 1 GTT, 1X/DAY
     Route: 061
     Dates: start: 2015, end: 2015
  7. ARMOUR THYROID [Concomitant]
     Active Substance: THYROID, PORCINE
     Dosage: 40 G, 1X/DAY
  8. KERYDIN [Suspect]
     Active Substance: TAVABOROLE
     Dosage: 1 GTT, 1X/DAY
     Route: 061
     Dates: start: 201510, end: 20151208
  9. CALCIUM [Concomitant]
     Active Substance: CALCIUM
     Dosage: UNK, 1X/DAY
  10. VITAMIN B [Concomitant]
     Active Substance: VITAMIN B
     Dosage: UNK, 1X/DAY
     Route: 048

REACTIONS (11)
  - Scab [Not Recovered/Not Resolved]
  - Erythema [Not Recovered/Not Resolved]
  - Rash [Not Recovered/Not Resolved]
  - Skin fissures [Not Recovered/Not Resolved]
  - Skin infection [Not Recovered/Not Resolved]
  - Dry skin [Not Recovered/Not Resolved]
  - Lip swelling [Recovering/Resolving]
  - Skin exfoliation [Not Recovered/Not Resolved]
  - Pruritus [Not Recovered/Not Resolved]
  - Ear swelling [Recovering/Resolving]
  - Application site erythema [Recovering/Resolving]

NARRATIVE: CASE EVENT DATE: 2015
